FAERS Safety Report 4374444-0 (Version None)
Quarter: 2004Q2

REPORT INFORMATION
  Report Type: 
  Country: None (occurrence: None)
  Receive Date: 20040603
  Receipt Date: 20040525
  Transmission Date: 20050107
  Serious: Yes (Other)
  Sender: FDA-Public Use
  Company Number: 2004EU001078

PATIENT
  Age: 45 Year
  Sex: Male

DRUGS (3)
  1. PROGRAF [Suspect]
     Indication: RENAL TRANSPLANT
     Dates: start: 20020101
  2. CYMEVAN (GANCICLOVIR SODIUM) [Suspect]
     Dates: start: 20020101, end: 20030101
  3. ANTIVITAMIN K [Concomitant]

REACTIONS (3)
  - CONVULSION [None]
  - OPTIC NEURITIS RETROBULBAR [None]
  - TREMOR [None]
